FAERS Safety Report 7991713-3 (Version None)
Quarter: 2011Q4

REPORT INFORMATION
  Report Type: 
  Country: None (occurrence: None)
  Receive Date: 20111219
  Receipt Date: 20111206
  Transmission Date: 20120403
  Serious: Yes (Congenital Anomaly)
  Sender: FDA-Public Use
  Company Number: DE-MYLANLABS-2011S1024951

PATIENT
  Age: 0 Year
  Sex: Female
  Weight: 3.5 kg

DRUGS (3)
  1. LAMOTRIGINE [Suspect]
     Dosage: 50 [MG/D (2X25) ]
     Route: 064
  2. BERLINSULIN H NORMAL [Concomitant]
     Dosage: 60 [I.E./D (BIS 3X15) ]
     Route: 064
  3. BERLINSULIN H BASAL [Concomitant]
     Dosage: 25 [I.E./D ]
     Route: 064

REACTIONS (2)
  - PULMONARY VALVE INCOMPETENCE [None]
  - MATERNAL EXPOSURE DURING PREGNANCY [None]
